FAERS Safety Report 7941411-7 (Version None)
Quarter: 2011Q4

REPORT INFORMATION
  Report Type: 
  Country: None (occurrence: None)
  Receive Date: 20111122
  Receipt Date: 20111122
  Transmission Date: 20120403
  Serious: Yes (Life-Threatening, Other)
  Sender: FDA-Public Use
  Company Number: None

PATIENT
  Sex: Female
  Weight: 58.0604 kg

DRUGS (5)
  1. TRAZODONE HCL [Suspect]
     Indication: INSOMNIA
     Dosage: 100-150 MG NIGHTLY ORAL
     Route: 048
     Dates: start: 19940101, end: 20110101
  2. GUAFINESIN [Concomitant]
  3. DEXTROMETHORPHAN HYDROBROMIDE [Concomitant]
  4. BACTRIM [Concomitant]
  5. FLUOXETINE [Concomitant]

REACTIONS (2)
  - DYSPHAGIA [None]
  - CHOKING [None]
